FAERS Safety Report 5682373-5 (Version None)
Quarter: 2008Q1

REPORT INFORMATION
  Report Type: 
  Country: None (occurrence: None)
  Receive Date: 20080327
  Receipt Date: 20070326
  Transmission Date: 20080703
  Serious: No
  Sender: FDA-Public Use
  Company Number: US-BAUSCH-2007BL000315

PATIENT
  Age: 74 Year
  Sex: Male

DRUGS (3)
  1. IPRATROPIUM BROMIDE NASAL SOLUTION 0.03% [Suspect]
     Indication: HYPERSENSITIVITY
     Route: 045
     Dates: start: 20060612, end: 20060819
  2. IPRATROPIUM BROMIDE NASAL SOLUTION 0.03% [Suspect]
     Route: 045
     Dates: start: 20060821, end: 20070118
  3. NASACORT [Concomitant]
     Indication: HYPERSENSITIVITY
     Route: 045
     Dates: start: 20020101

REACTIONS (2)
  - ACCIDENTAL OVERDOSE [None]
  - DRUG HYPERSENSITIVITY [None]
